FAERS Safety Report 20376128 (Version 3)
Quarter: 2022Q2

REPORT INFORMATION
  Report Type: Report from Study
  Country: KR (occurrence: KR)
  Receive Date: 20220125
  Receipt Date: 20220415
  Transmission Date: 20220721
  Serious: Yes (Hospitalization)
  Sender: FDA-Public Use
  Company Number: KR-JNJFOC-20211204035

PATIENT
  Age: 62 Year
  Sex: Male
  Weight: 49 kg

DRUGS (18)
  1. ERDAFITINIB [Suspect]
     Active Substance: ERDAFITINIB
     Indication: Transitional cell carcinoma
     Route: 048
     Dates: start: 20210303
  2. DICLOMED [Concomitant]
     Indication: Stomatitis
     Dates: start: 20210401
  3. xeroba [Concomitant]
     Indication: Stomatitis
     Dates: start: 20210423
  4. CLOBETASOL [Concomitant]
     Active Substance: CLOBETASOL
     Indication: Palmar-plantar erythrodysaesthesia syndrome
     Dates: start: 20210707
  5. OFLOXACIN [Concomitant]
     Active Substance: OFLOXACIN
     Indication: Dry eye
     Dates: start: 20210623
  6. NEWHYALUNI [Concomitant]
     Indication: Dry eye
     Dates: start: 20210623
  7. CYPORIN [Concomitant]
     Indication: Dry eye
     Dates: start: 20210901
  8. PROTOPIC [Concomitant]
     Active Substance: TACROLIMUS
     Indication: Palmar-plantar erythrodysaesthesia syndrome
     Dates: start: 20210915
  9. QUETIAPINE FUMARATE [Concomitant]
     Active Substance: QUETIAPINE FUMARATE
     Indication: Insomnia
     Dates: start: 20211023
  10. godex [Concomitant]
     Indication: Prophylaxis
     Dates: start: 20211101
  11. URSODIOL [Concomitant]
     Active Substance: URSODIOL
     Indication: Prophylaxis
     Dates: start: 20211101
  12. HARMONILAN [Concomitant]
     Indication: Hypophagia
     Dates: start: 20211031
  13. FOLIC ACID [Concomitant]
     Active Substance: FOLIC ACID
     Indication: Prophylaxis
     Dates: start: 20211108
  14. VENITOL [Concomitant]
     Indication: Prophylaxis
     Dates: start: 20211201
  15. APETROL [Concomitant]
     Indication: Decreased appetite
     Dates: start: 20211115
  16. BEECOM HEXA [Concomitant]
     Indication: Prophylaxis
     Dates: start: 20211201
  17. AMINO ACIDS\DEXTROSE\ELECTROLYTES NOS\SOYBEAN OIL [Concomitant]
     Active Substance: AMINO ACIDS\DEXTROSE\ELECTROLYTES NOS\SOYBEAN OIL
     Indication: Prophylaxis
     Dates: start: 20211201
  18. LEVOFLOXACIN [Concomitant]
     Active Substance: LEVOFLOXACIN
     Indication: Dry eye
     Dates: start: 20211201

REACTIONS (2)
  - Thrombocytopenia [Not Recovered/Not Resolved]
  - Hypophagia [Recovering/Resolving]

NARRATIVE: CASE EVENT DATE: 20211201
